FAERS Safety Report 11607872 (Version 2)
Quarter: 2015Q4

REPORT INFORMATION
  Report Type: Report from Study
  Country: JP (occurrence: JP)
  Receive Date: 20151007
  Receipt Date: 20151008
  Transmission Date: 20160304
  Serious: Yes (Hospitalization)
  Sender: FDA-Public Use
  Company Number: JP-009507513-1504JPN001085

PATIENT
  Age: 2 Month
  Sex: Female

DRUGS (3)
  1. DIAZOXIDE [Suspect]
     Active Substance: DIAZOXIDE
     Dosage: 20 MG, TID
     Route: 048
     Dates: start: 20140131, end: 20140202
  2. DIAZOXIDE [Suspect]
     Active Substance: DIAZOXIDE
     Dosage: 10 MG, TID
     Route: 048
     Dates: start: 20140203, end: 20140205
  3. DIAZOXIDE [Suspect]
     Active Substance: DIAZOXIDE
     Indication: HYPOGLYCAEMIA
     Dosage: 40 MG, TID
     Route: 048
     Dates: start: 20140123, end: 20140130

REACTIONS (2)
  - Iron deficiency anaemia [Recovered/Resolved]
  - Gastroenteritis [Recovered/Resolved]

NARRATIVE: CASE EVENT DATE: 20140123
